FAERS Safety Report 9768939 (Version 1)
Quarter: 2013Q4

REPORT INFORMATION
  Report Type: Spontaneous
  Country: DE (occurrence: None)
  Receive Date: 20131216
  Receipt Date: 20131216
  Transmission Date: 20140711
  Serious: Yes (Death)
  Sender: FDA-Public Use
  Company Number: AUR-APL-2013-10460

PATIENT
  Sex: Male
  Weight: 76 kg

DRUGS (1)
  1. METFORMIN [Suspect]
     Dosage: 2000MG (1000 MG, 2 IN 1 D) ORAL
     Route: 048

REACTIONS (1)
  - Lactic acidosis [None]
